FAERS Safety Report 21958506 (Version 1)
Quarter: 2023Q1

REPORT INFORMATION
  Report Type: Report from Study
  Country: US (occurrence: US)
  Receive Date: 20230206
  Receipt Date: 20230206
  Transmission Date: 20230417
  Serious: Yes (Other)
  Sender: FDA-Public Use
  Company Number: US-UPSHER-SMITH LABORATORIES, LLC-2023USL00078

PATIENT

DRUGS (2)
  1. VIGADRONE [Suspect]
     Active Substance: VIGABATRIN
     Dosage: UNK
  2. VIGADRONE [Suspect]
     Active Substance: VIGABATRIN
     Dosage: WEANED OFF

REACTIONS (3)
  - Sleep apnoea syndrome [Unknown]
  - Myoclonic epilepsy [Unknown]
  - Vomiting [Unknown]
